FAERS Safety Report 15433787 (Version 3)
Quarter: 2020Q3

REPORT INFORMATION
  Report Type: Spontaneous
  Country: IT (occurrence: IT)
  Receive Date: 20180927
  Receipt Date: 20190726
  Transmission Date: 20201104
  Serious: Yes (Hospitalization, Other)
  Sender: FDA-Public Use
  Company Number: IT-AUROBINDO-AUR-APL-2018-047461

PATIENT
  Age: 69 Year
  Sex: Male

DRUGS (7)
  1. LEVOFLOXACIN. [Suspect]
     Active Substance: LEVOFLOXACIN
     Indication: URINARY TRACT INFECTION
     Dosage: 250 MILLIGRAM
     Route: 065
  2. CIPROFLOXACIN. [Suspect]
     Active Substance: CIPROFLOXACIN
     Indication: HAEMATURIA
     Dosage: 500 MILLIGRAM, ONCE A DAY, 250 MG, BID
     Route: 065
     Dates: start: 201709
  3. AMIKACIN. [Suspect]
     Active Substance: AMIKACIN
     Indication: ANTIBIOTIC PROPHYLAXIS
     Route: 042
  4. AMIKACIN. [Suspect]
     Active Substance: AMIKACIN
     Indication: PROPHYLAXIS
  5. AMIKACIN. [Suspect]
     Active Substance: AMIKACIN
     Indication: PSEUDOMONAS INFECTION
  6. LEVOFLOXACIN. [Suspect]
     Active Substance: LEVOFLOXACIN
     Indication: ANTIBIOTIC PROPHYLAXIS
     Dosage: 250 MILLIGRAM
     Route: 065
     Dates: start: 2017
  7. CIPROFLOXACIN. [Suspect]
     Active Substance: CIPROFLOXACIN
     Indication: CYSTITIS HAEMORRHAGIC
     Dosage: 500 MILLIGRAM DAILY; EMPIRICALLY TREATED
     Route: 065
     Dates: start: 201708

REACTIONS (3)
  - Adenoma benign [Unknown]
  - Multiple-drug resistance [Unknown]
  - Pathogen resistance [Unknown]

NARRATIVE: CASE EVENT DATE: 201709
